FAERS Safety Report 6250239-8 (Version None)
Quarter: 2009Q2

REPORT INFORMATION
  Report Type: 
  Country: None (occurrence: None)
  Receive Date: 20090626
  Receipt Date: 20090626
  Transmission Date: 20091009
  Serious: No
  Sender: FDA-Public Use
  Company Number: None

PATIENT
  Age: 64 Year
  Sex: Male
  Weight: 58.6 kg

DRUGS (2)
  1. VANCOMYCIN [Suspect]
     Dosage: 1 GM EVERY DAY IV
     Route: 042
     Dates: start: 20090327, end: 20090405
  2. CEFTAZIDIME [Suspect]
     Dosage: 1 GM TID IV
     Route: 042
     Dates: start: 20090327, end: 20090405

REACTIONS (1)
  - CLOSTRIDIUM DIFFICILE COLITIS [None]
